FAERS Safety Report 24070085 (Version 1)
Quarter: 2024Q3

REPORT INFORMATION
  Report Type: Report from Study
  Country: US (occurrence: US)
  Receive Date: 20240710
  Receipt Date: 20240710
  Transmission Date: 20241017
  Serious: No
  Sender: ROCHE
  Company Number: US-ROCHE-3566521

PATIENT
  Age: 71 Year
  Sex: Female
  Weight: 54.0 kg

DRUGS (1)
  1. ROZLYTREK [Suspect]
     Active Substance: ENTRECTINIB
     Indication: Lung neoplasm malignant
     Dosage: MORE DOSAGE INFORMATION IS 200 MG X 90 CAPSULE BOTTLE
     Route: 048
     Dates: start: 20240514

REACTIONS (1)
  - Visual impairment [Unknown]
